FAERS Safety Report 9639239 (Version 4)
Quarter: 2014Q1

REPORT INFORMATION
  Report Type: Spontaneous
  Country: JP (occurrence: JP)
  Receive Date: 20131022
  Receipt Date: 20140110
  Transmission Date: 20141002
  Serious: Yes (Hospitalization, Other)
  Sender: FDA-Public Use
  Company Number: JP-ROCHE-1290556

PATIENT
  Age: 66 Year
  Sex: Female
  Weight: 45 kg

DRUGS (24)
  1. HERCEPTIN [Suspect]
     Indication: BREAST CANCER METASTATIC
     Dosage: DOSAGE IS UNCERTAIN.
     Route: 041
     Dates: start: 201112
  2. HERCEPTIN [Suspect]
     Indication: BREAST CANCER METASTATIC
     Route: 041
     Dates: start: 20120112, end: 20120312
  3. HERCEPTIN [Suspect]
     Indication: BREAST CANCER METASTATIC
     Dosage: DOSAGE IS UNCERTAIN.
     Route: 041
     Dates: start: 20120404, end: 20120606
  4. HERCEPTIN [Suspect]
     Indication: BREAST CANCER METASTATIC
     Dosage: DOSAGE IS UNCERTAIN.
     Route: 041
     Dates: start: 20130823, end: 20130912
  5. HERCEPTIN [Suspect]
     Indication: BREAST CANCER METASTATIC
     Route: 041
     Dates: start: 20130913, end: 20131004
  6. PERJETA [Suspect]
     Indication: BREAST CANCER METASTATIC
     Dosage: STRENGTH: 420 MG/14ML
     Route: 041
     Dates: start: 20130913, end: 20130913
  7. PERJETA [Suspect]
     Indication: BREAST CANCER METASTATIC
     Route: 041
     Dates: start: 20131004, end: 20131004
  8. PERJETA [Suspect]
     Indication: BREAST CANCER METASTATIC
  9. TAXOTERE [Suspect]
     Indication: BREAST CANCER METASTATIC
     Route: 041
     Dates: start: 20120112, end: 20120312
  10. TAXOTERE [Suspect]
     Indication: BREAST CANCER METASTATIC
     Route: 041
     Dates: start: 20130913, end: 20131004
  11. TS-1 [Concomitant]
     Indication: BREAST CANCER METASTATIC
     Route: 048
     Dates: start: 20120404, end: 20120606
  12. TS-1 [Concomitant]
     Indication: BREAST CANCER METASTATIC
     Route: 048
     Dates: start: 20120628, end: 20120717
  13. TYKERB [Concomitant]
     Indication: BREAST CANCER METASTATIC
     Route: 048
     Dates: start: 20120628, end: 20120724
  14. TYKERB [Concomitant]
     Indication: BREAST CANCER METASTATIC
     Route: 048
     Dates: start: 20120725, end: 20120912
  15. XELODA [Concomitant]
     Indication: BREAST CANCER METASTATIC
     Route: 048
     Dates: start: 20120718, end: 20130912
  16. XELODA [Concomitant]
     Route: 048
     Dates: start: 20130823
  17. ZOMETA [Concomitant]
     Indication: BREAST CANCER METASTATIC
     Dosage: DOSAGE IS UNCERTAIN.
     Route: 065
     Dates: start: 201112, end: 201201
  18. ZOMETA [Concomitant]
     Indication: BREAST CANCER METASTATIC
     Dosage: DOSAGE IS UNCERTAIN.
     Route: 065
     Dates: start: 20130823, end: 20130912
  19. DOCETAXEL [Concomitant]
     Indication: BREAST CANCER METASTATIC
     Route: 041
     Dates: start: 20120112
  20. DOCETAXEL [Concomitant]
     Indication: BREAST CANCER METASTATIC
     Route: 041
     Dates: start: 20130913
  21. DOCETAXEL [Concomitant]
     Indication: BREAST CANCER METASTATIC
     Route: 041
     Dates: start: 20131004
  22. LAPATINIB TOSILATE [Concomitant]
     Indication: BREAST CANCER METASTATIC
     Route: 048
     Dates: start: 20120628
  23. LAPATINIB TOSILATE [Concomitant]
     Route: 048
     Dates: start: 20120718
  24. LAPATINIB TOSILATE [Concomitant]
     Route: 048
     Dates: start: 20130823

REACTIONS (10)
  - Interstitial lung disease [Recovering/Resolving]
  - Activities of daily living impaired [Recovering/Resolving]
  - Dizziness [Recovering/Resolving]
  - Gait disturbance [Recovering/Resolving]
  - Dyspnoea [Recovering/Resolving]
  - Oxygen saturation decreased [Recovering/Resolving]
  - Meningitis [Unknown]
  - Neuropathy peripheral [Recovering/Resolving]
  - Cardiac failure [Recovered/Resolved]
  - Neutropenia [Recovering/Resolving]
